FAERS Safety Report 21868130 (Version 2)
Quarter: 2023Q1

REPORT INFORMATION
  Report Type: Spontaneous
  Country: US (occurrence: US)
  Receive Date: 20230116
  Receipt Date: 20230118
  Transmission Date: 20230418
  Serious: Yes (Hospitalization, Other)
  Sender: FDA-Public Use
  Company Number: US-009507513-2301USA005042

PATIENT
  Sex: Female
  Weight: 90.9 kg

DRUGS (23)
  1. JANUVIA [Suspect]
     Active Substance: SITAGLIPTIN PHOSPHATE
     Indication: Type 2 diabetes mellitus
     Dosage: 50 MILLIGRAM, QD
     Route: 048
  2. PREVYMIS [Concomitant]
     Active Substance: LETERMOVIR
     Dosage: 480 MILLIGRAM, EVERY 28 DAYS
     Route: 048
     Dates: start: 20210616
  3. REFRESH PLUS [Concomitant]
     Active Substance: CARBOXYMETHYLCELLULOSE SODIUM
     Dosage: ADMINISTER 2 DROPS TO BOTH EYES AS NEEDED FOR DRY EYES.
  4. PERIDEX [CHLORHEXIDINE GLUCONATE] [Concomitant]
     Dosage: SWISH AND SPIT 15 ML TWICE DAILY.
  5. VITAMIN D3 [Concomitant]
     Active Substance: CHOLECALCIFEROL
     Dosage: TAKE 2 TABLETS BY MOUTH
     Route: 048
  6. DAPSONE [Concomitant]
     Active Substance: DAPSONE
     Indication: Infection prophylaxis
     Dosage: TAKE 100 MG BY MOUTH DAILY.
     Route: 048
     Dates: start: 20220429
  7. BENTYL [Concomitant]
     Active Substance: DICYCLOMINE HYDROCHLORIDE
     Indication: Abdominal pain
     Dosage: TAKE 1 CAPSULE (10 MG) BY MOUTH EVERY 6 (SIX) HOUR AS NEEDED.
     Route: 048
  8. PREVIDENT 5000 BOOSTER [Concomitant]
     Active Substance: SODIUM FLUORIDE
     Dosage: APPLY 1 DOSE TO TEETH TWICE DAILY.
  9. FLONASE [Concomitant]
     Active Substance: FLUTICASONE PROPIONATE
     Indication: Hypersensitivity
     Dosage: INHALE 2 SPRAYS (100 MCG) INTO EACH NOSTRIL DAILY AS NEEDED.
  10. NOVOLOG [Concomitant]
     Active Substance: INSULIN ASPART
     Indication: Type 2 diabetes mellitus
     Dosage: 2 TO 20 UNITS UNDER THE SKIN 3 (THREE) TIMES A DAY BEFORE MEALS.
  11. TRESIBA [Concomitant]
     Active Substance: INSULIN DEGLUDEC
     Indication: Type 2 diabetes mellitus
     Dosage: INJECT 10 TO 20 UNITS UNDER THE SKIN DAILY.
  12. CRESEMBA [Concomitant]
     Active Substance: ISAVUCONAZONIUM SULFATE
     Indication: Infection prophylaxis
     Dosage: TAKE 2 CAPSULES (372 MG) BY MOUTH DAILY.
     Route: 048
     Dates: start: 20220429
  13. LORATADINE [Concomitant]
     Active Substance: LORATADINE
     Indication: Hypersensitivity
     Dosage: TAKE 1 TABLET (10 MG) BY MOUTH DAILY AS NEEDED.
     Route: 048
  14. PANTOPRAZOLE [Concomitant]
     Active Substance: PANTOPRAZOLE
     Indication: Prophylaxis
     Dosage: TAKE 1 TABLET (40 MG) BY MOUTH DAILY.
     Route: 048
  15. GLYCOLAX [Concomitant]
     Active Substance: POLYETHYLENE GLYCOL 3350
     Dosage: STIR AND DISSOLVE IN ANY 4 TO 8 OUNCES OF BEVERAGE THEN DRINK SOLUTION DAILY AS DIRECTED.
  16. CRESTOR [Concomitant]
     Active Substance: ROSUVASTATIN CALCIUM
     Dosage: TAKE 1 TABLET (20 MG) BY MOUTH AT BEDTIME.
     Route: 048
  17. SENOKOT-S [Concomitant]
     Active Substance: DOCUSATE SODIUM\SENNOSIDES
     Dosage: TAKE 1 TABLET BY MOUTH TWICE DAILY FOR 30 DAYS.
     Route: 048
  18. SODIUM CHLORIDE [Concomitant]
     Active Substance: SODIUM CHLORIDE
     Dosage: INTO EACH LUMEN OF CENTRAL VENOUS CATHETER DAILY AS DIRECTED.
  19. REFRESH LACRI-LUBE [Concomitant]
     Active Substance: MINERAL OIL\PETROLATUM
     Dosage: ADMINISTER 1 APPLICATION TO BOTH EYES NIGHTLY AS NEEDED.
  20. RAPAMUNE [Concomitant]
     Active Substance: SIROLIMUS
     Dosage: 1 MILLIGRAM, QD
     Route: 048
  21. RAPAMUNE [Concomitant]
     Active Substance: SIROLIMUS
     Dosage: TAKE 1.5 ML (1.5 MG) BY MOUTH DAILY.
     Route: 048
     Dates: start: 20221216
  22. VALACYCLOVIR [Concomitant]
     Active Substance: VALACYCLOVIR HYDROCHLORIDE
     Indication: Infection prophylaxis
     Dosage: 500 MILLIGRAM, QOD
     Dates: start: 20220429
  23. VEDOLIZUMAB [Concomitant]
     Active Substance: VEDOLIZUMAB
     Dosage: UNK
     Dates: start: 20221115

REACTIONS (61)
  - Bacteraemia [Unknown]
  - Chronic kidney disease [Unknown]
  - Immunodeficiency [Unknown]
  - Hypoxia [Unknown]
  - Immunosuppression [Unknown]
  - Chronic graft versus host disease [Unknown]
  - Adverse event [Unknown]
  - Myocarditis [Unknown]
  - Stem cell transplant [Unknown]
  - Neutropenia [Unknown]
  - Acute myeloid leukaemia [Unknown]
  - Cerebrovascular accident [Unknown]
  - Anaemia of chronic disease [Unknown]
  - Anaemia of malignant disease [Unknown]
  - Cardiomyopathy [Unknown]
  - Urinary tract infection [Unknown]
  - Atrial fibrillation [Unknown]
  - Atrial fibrillation [Unknown]
  - Thrombocytopenia [Unknown]
  - Thrombocytopenia [Unknown]
  - Diarrhoea [Unknown]
  - Adverse drug reaction [Unknown]
  - Physical deconditioning [Unknown]
  - Pleural effusion [Unknown]
  - Respiratory syncytial virus infection [Unknown]
  - Musculoskeletal disorder [Unknown]
  - Gait disturbance [Unknown]
  - Impaired self-care [Unknown]
  - Malnutrition [Unknown]
  - Taste disorder [Unknown]
  - Type V hyperlipidaemia [Unknown]
  - Diverticulum intestinal [Unknown]
  - Gastrointestinal disorder [Unknown]
  - Cardiac septal hypertrophy [Unknown]
  - Hypomagnesaemia [Unknown]
  - Osteoporosis [Unknown]
  - Candida infection [Unknown]
  - Adverse drug reaction [Unknown]
  - Gastric mucosal lesion [Unknown]
  - Eosinophil count decreased [Unknown]
  - PCO2 decreased [Unknown]
  - Protein total decreased [Unknown]
  - Haemochromatosis [Unknown]
  - Chimerism [Unknown]
  - Dyspnoea [Unknown]
  - Acute myeloid leukaemia (in remission) [Unknown]
  - Pulmonary imaging procedure abnormal [Unknown]
  - Visual impairment [Unknown]
  - Decreased appetite [Unknown]
  - Urinary tract infection [Unknown]
  - Faeces soft [Unknown]
  - Blood lactate dehydrogenase increased [Unknown]
  - Chronic gastritis [Unknown]
  - Hypertension [Unknown]
  - Hyperglycaemia [Unknown]
  - Liver function test increased [Unknown]
  - Fatigue [Unknown]
  - Fatigue [Unknown]
  - Nausea [Unknown]
  - Diarrhoea [Unknown]
  - Diarrhoea [Unknown]

NARRATIVE: CASE EVENT DATE: 20210101
